FAERS Safety Report 21618735 (Version 1)
Quarter: 2022Q4

REPORT INFORMATION
  Report Type: Spontaneous
  Country: US (occurrence: US)
  Receive Date: 20221119
  Receipt Date: 20221119
  Transmission Date: 20230113
  Serious: No
  Sender: FDA-Public Use
  Company Number: USCollegium2022-000130

PATIENT

DRUGS (1)
  1. BELBUCA [Suspect]
     Active Substance: BUPRENORPHINE HYDROCHLORIDE
     Indication: Product used for unknown indication
     Dosage: 150 MICROGRAM, BID
     Route: 065
     Dates: start: 2022

REACTIONS (4)
  - Product solubility abnormal [Unknown]
  - Incorrect route of product administration [Unknown]
  - Product physical consistency issue [Unknown]
  - Oral administration complication [Unknown]

NARRATIVE: CASE EVENT DATE: 20220101
